FAERS Safety Report 20380821 (Version 1)
Quarter: 2022Q1

REPORT INFORMATION
  Report Type: Spontaneous
  Country: NL (occurrence: NL)
  Receive Date: 20220127
  Receipt Date: 20220127
  Transmission Date: 20220423
  Serious: Yes (Hospitalization)
  Sender: FDA-Public Use
  Company Number: NL-ROCHE-2782963

PATIENT

DRUGS (5)
  1. IRINOTECAN [Suspect]
     Active Substance: IRINOTECAN
     Indication: Colorectal cancer
     Dosage: 165 MILLIGRAM/SQ. METER,DATE OF MOST RECENT DOSE OF IROTECAN PRIOR TO ONSET OF SAE: 21/OCT/2020
     Route: 042
     Dates: start: 20201008
  2. BEVACIZUMAB [Suspect]
     Active Substance: BEVACIZUMAB
     Indication: Colorectal cancer
     Dosage: 5 MILLIGRAM/KILOGRAM,DATE OF MOST RECENT DOSE OF BEVACIZUMAB PRIOR TO ONSET OF SAE: 21/OCT/2020
     Route: 042
     Dates: start: 20201008
  3. FLUOROURACIL [Suspect]
     Active Substance: FLUOROURACIL
     Indication: Colorectal cancer
     Dosage: 3200 MILLIGRAM/SQ. METER,DATE OF MOST RECENT DOSE OF FLUOROURACIL PRIOR TO ONSET OF SAE: 21/OCT/2020
     Route: 042
     Dates: start: 20201008
  4. LEUCOVORIN [Suspect]
     Active Substance: LEUCOVORIN
     Indication: Colorectal cancer
     Dosage: 400 MILLIGRAM/SQ. METER,DATE OF MOST RECENT DOSE OF LEUCOVORIN PRIOR TO ONSET OF SAE: 21/OCT/2020
     Route: 042
     Dates: start: 20201008
  5. OXALIPLATIN [Suspect]
     Active Substance: OXALIPLATIN
     Indication: Colorectal cancer
     Dosage: 85 MILLIGRAM/SQ. METER,DATE OF MOST RECENT DOSE OF OXALIPLATIN PRIOR TO ONSET OF SAE: 21/OCT/2020
     Route: 042
     Dates: start: 20201008

REACTIONS (4)
  - Nausea [Recovered/Resolved]
  - Hypomagnesaemia [Recovered/Resolved]
  - Diarrhoea [Recovering/Resolving]
  - Hypocalcaemia [Recovered/Resolved]

NARRATIVE: CASE EVENT DATE: 20201101
